FAERS Safety Report 23618547 (Version 1)
Quarter: 2024Q1

REPORT INFORMATION
  Report Type: Spontaneous
  Country: US (occurrence: US)
  Receive Date: 20240311
  Receipt Date: 20240311
  Transmission Date: 20240409
  Serious: Yes (Other)
  Sender: FDA-Public Use
  Company Number: US-PFIZER INC-2020444080

PATIENT
  Age: 65 Year
  Sex: Male

DRUGS (1)
  1. XALKORI [Suspect]
     Active Substance: CRIZOTINIB
     Dosage: TAKE 1 CAPSULE BY MOUTH 2 TIMES A DAY
     Route: 048
     Dates: start: 201911

REACTIONS (12)
  - Neuropathy peripheral [Unknown]
  - Blood calcium decreased [Unknown]
  - Blood albumin decreased [Unknown]
  - Haemoglobin decreased [Unknown]
  - Mean cell haemoglobin decreased [Unknown]
  - Red cell distribution width increased [Unknown]
  - Platelet count increased [Unknown]
  - Mean platelet volume decreased [Unknown]
  - Lymphocyte count decreased [Unknown]
  - Monocyte count increased [Unknown]
  - Blood pH decreased [Unknown]
  - Calcium ionised decreased [Unknown]

NARRATIVE: CASE EVENT DATE: 20220414
